FAERS Safety Report 6787684-8 (Version None)
Quarter: 2010Q2

REPORT INFORMATION
  Report Type: 
  Country: None (occurrence: None)
  Receive Date: 20100623
  Receipt Date: 20071102
  Transmission Date: 20101027
  Serious: Yes (Death)
  Sender: FDA-Public Use
  Company Number: US-PFIZER INC-2007044227

PATIENT
  Age: 49 Year
  Sex: Male
  Weight: 72.1 kg

DRUGS (2)
  1. SUTENT [Suspect]
     Indication: RENAL CELL CARCINOMA
     Dosage: DAILY
     Route: 048
     Dates: start: 20070125
  2. ZOMETA [Concomitant]
     Route: 042

REACTIONS (4)
  - DISEASE PROGRESSION [None]
  - FEELING ABNORMAL [None]
  - RASH [None]
  - RENAL CELL CARCINOMA [None]
